FAERS Safety Report 9788329 (Version 2)
Quarter: 2014Q1

REPORT INFORMATION
  Report Type: Spontaneous
  Country: DE (occurrence: DE)
  Receive Date: 20131230
  Receipt Date: 20140303
  Transmission Date: 20141002
  Serious: Yes (Other)
  Sender: FDA-Public Use
  Company Number: PHHY2013DE150200

PATIENT
  Sex: Female

DRUGS (1)
  1. LEPONEX [Suspect]
     Dosage: UNK, FOETAL DRUG EXPOSURE VIA FATHER

REACTIONS (2)
  - Abortion early [Unknown]
  - Exposure via father [Unknown]
